FAERS Safety Report 21286845 (Version 2)
Quarter: 2022Q3

REPORT INFORMATION
  Report Type: Report from Study
  Country: CA (occurrence: CA)
  Receive Date: 20220902
  Receipt Date: 20220906
  Transmission Date: 20221027
  Serious: Yes (Other)
  Sender: FDA-Public Use
  Company Number: CA-TEVA-2022-CA-2068702

PATIENT
  Age: 41 Year
  Sex: Male

DRUGS (1)
  1. AJOVY [Suspect]
     Active Substance: FREMANEZUMAB-VFRM
     Indication: Migraine prophylaxis
     Dosage: LAST DOSE ADMINISTERED DATE 23-AUG-2022
     Route: 058
     Dates: start: 20220723

REACTIONS (10)
  - Delirium [Not Recovered/Not Resolved]
  - Muscle spasms [Recovering/Resolving]
  - Hyperhidrosis [Unknown]
  - Pyrexia [Unknown]
  - Nausea [Unknown]
  - Abdominal discomfort [Unknown]
  - Heart rate increased [Recovering/Resolving]
  - Sinus rhythm [Recovering/Resolving]
  - Fatigue [Unknown]
  - Illness [Unknown]

NARRATIVE: CASE EVENT DATE: 20220101
